FAERS Safety Report 10129919 (Version 2)
Quarter: 2014Q3

REPORT INFORMATION
  Report Type: Spontaneous
  Country: CA (occurrence: CA)
  Receive Date: 20140428
  Receipt Date: 20140926
  Transmission Date: 20150326
  Serious: Yes (Other)
  Sender: FDA-Public Use
  Company Number: CA-ABBVIE-14P-028-1229026-00

PATIENT
  Age: 45 Year
  Sex: Female
  Weight: 49.94 kg

DRUGS (7)
  1. OMEPRAZOLE. [Concomitant]
     Active Substance: OMEPRAZOLE
     Indication: PRODUCT USED FOR UNKNOWN INDICATION
  2. ATIVAN [Concomitant]
     Active Substance: LORAZEPAM
     Indication: PRODUCT USED FOR UNKNOWN INDICATION
  3. SYNTHROID [Suspect]
     Active Substance: LEVOTHYROXINE SODIUM
     Indication: HYPERTHYROIDISM
     Route: 048
     Dates: start: 201308, end: 201312
  4. MIRTAZAPINE. [Concomitant]
     Active Substance: MIRTAZAPINE
     Indication: PRODUCT USED FOR UNKNOWN INDICATION
  5. ZOPICLONE [Concomitant]
     Active Substance: ZOPICLONE
     Indication: PRODUCT USED FOR UNKNOWN INDICATION
  6. ROSUVASTATIN [Concomitant]
     Active Substance: ROSUVASTATIN
     Indication: PRODUCT USED FOR UNKNOWN INDICATION
  7. RAN-LISINOPRIL [Concomitant]
     Indication: CARDIOMEGALY
     Dosage: DAILY DOSE: 10 MILLIGRAM; 1/4 TABLET

REACTIONS (9)
  - Product coating issue [Unknown]
  - Product taste abnormal [Unknown]
  - Blood glucose abnormal [Recovered/Resolved]
  - Paralysis [Unknown]
  - Petit mal epilepsy [Unknown]
  - Muscle twitching [Unknown]
  - Blood glucose decreased [Recovered/Resolved]
  - Hypoaesthesia [Unknown]
  - Weight decreased [Unknown]

NARRATIVE: CASE EVENT DATE: 20130819
